FAERS Safety Report 6121345-3 (Version None)
Quarter: 2009Q1

REPORT INFORMATION
  Report Type: 
  Country: None (occurrence: None)
  Receive Date: 20090313
  Receipt Date: 20090303
  Transmission Date: 20090719
  Serious: Yes (Death)
  Sender: FDA-Public Use
  Company Number: 8042189

PATIENT
  Age: 49 Year
  Sex: Female
  Weight: 53.63 kg

DRUGS (5)
  1. CIMZIA [Suspect]
     Dosage: 400 MG 1/2 W SC
     Route: 058
     Dates: start: 20081014, end: 20081112
  2. CIMZIA [Suspect]
     Dosage: 400 MG /M SC
     Route: 058
     Dates: start: 20081208, end: 20090105
  3. IMURAN [Concomitant]
  4. ASACOL [Concomitant]
  5. REMICADE [Suspect]
     Dates: start: 20060101, end: 20080101

REACTIONS (1)
  - MYOCARDIAL INFARCTION [None]
